FAERS Safety Report 18846289 (Version 1)
Quarter: 2021Q1

REPORT INFORMATION
  Report Type: Spontaneous
  Country: US (occurrence: US)
  Receive Date: 20210204
  Receipt Date: 20210204
  Transmission Date: 20210419
  Serious: Yes (Hospitalization, Other)
  Sender: FDA-Public Use
  Company Number: US-NOVOPROD-769476

PATIENT
  Age: 68 Year
  Sex: Male

DRUGS (2)
  1. NOVOLIN R [Suspect]
     Active Substance: INSULIN HUMAN
     Indication: DIABETES MELLITUS
     Dosage: SLIDING SCALE, ONLY TAKES 1 TIME PER MONTH OR SO TO TREAT WHEN BLOOD SUGARS ARE HIGH
     Route: 065
     Dates: start: 2013
  2. HUMULINE (INSULIN HUMAN\INSULIN HUMAN INJECTION, ISOPHANE) [Suspect]
     Active Substance: INSULIN HUMAN
     Indication: DIABETES MELLITUS
     Dosage: UNK
     Route: 065
     Dates: start: 2016

REACTIONS (6)
  - Abscess limb [Recovered/Resolved]
  - Skin exfoliation [Unknown]
  - Condition aggravated [Recovered/Resolved]
  - Joint injury [Not Recovered/Not Resolved]
  - Thrombosis [Recovered/Resolved]
  - Blood glucose increased [Recovered/Resolved]

NARRATIVE: CASE EVENT DATE: 201711
